FAERS Safety Report 4578558-1 (Version None)
Quarter: 2005Q1

REPORT INFORMATION
  Report Type: 
  Country: None (occurrence: None)
  Receive Date: 20050204
  Receipt Date: 20050204
  Transmission Date: 20050727
  Serious: No
  Sender: FDA-Public Use
  Company Number: None

PATIENT
  Age: 56 Year
  Sex: Female
  Weight: 61.2356 kg

DRUGS (1)
  1. CRESTOR [Suspect]
     Dosage: 1 A DAY     ORAL
     Route: 048
     Dates: start: 20040920, end: 20041020

REACTIONS (4)
  - ASTHENIA [None]
  - HYPERSENSITIVITY [None]
  - MYALGIA [None]
  - PAIN IN EXTREMITY [None]
